FAERS Safety Report 6920742-3 (Version None)
Quarter: 2010Q3

REPORT INFORMATION
  Report Type: 
  Country: None (occurrence: None)
  Receive Date: 20100804
  Receipt Date: 20100415
  Transmission Date: 20110219
  Serious: No
  Sender: FDA-Public Use
  Company Number: 2010-1284

PATIENT
  Age: 40 Year
  Sex: Female
  Weight: 93 kg

DRUGS (2)
  1. LANROETIDE AUTOGEL (LANREOTIDE) (LANREOTIDE ACETATE) [Suspect]
     Indication: BRAIN NEOPLASM
     Dosage: NOT REPORTED (NOT REPORTED, 1 IN 1 M)
     Dates: start: 20100415
  2. LISINOPRIL [Concomitant]

REACTIONS (2)
  - INJECTION SITE PAIN [None]
  - INJECTION SITE REACTION [None]
